FAERS Safety Report 23486101 (Version 2)
Quarter: 2024Q1

REPORT INFORMATION
  Report Type: Report from Study
  Country: US (occurrence: US)
  Receive Date: 20240206
  Receipt Date: 20240229
  Transmission Date: 20240409
  Serious: Yes (Other)
  Sender: FDA-Public Use
  Company Number: US-SA-SAC20231128000939

PATIENT
  Age: 50 Year
  Sex: Female
  Weight: 70 kg

DRUGS (2)
  1. AGALSIDASE BETA [Suspect]
     Active Substance: AGALSIDASE BETA
     Indication: Fabry^s disease
     Dosage: 70 (UNITS NOT PROVIDED), QOW
     Route: 042
     Dates: start: 20120503
  2. AGALSIDASE BETA [Suspect]
     Active Substance: AGALSIDASE BETA
     Dosage: 70 MG, QOW
     Route: 042
     Dates: start: 201609

REACTIONS (5)
  - Haemorrhagic ovarian cyst [Recovering/Resolving]
  - Trigger finger [Recovering/Resolving]
  - Product preparation issue [Unknown]
  - Off label use [Unknown]
  - Illness [Unknown]
